FAERS Safety Report 8816812 (Version 1)
Quarter: 2012Q4

REPORT INFORMATION
  Report Type: Spontaneous
  Country: CA (occurrence: None)
  Receive Date: 20121001
  Receipt Date: 20121001
  Transmission Date: 20130627
  Serious: Yes (Other)
  Sender: FDA-Public Use
  Company Number: 2012P1058896

PATIENT

DRUGS (1)
  1. ALPRAZOLAM [Suspect]
     Dosage: x2

REACTIONS (3)
  - Exposure during breast feeding [None]
  - Depressed level of consciousness [None]
  - Sedation [None]
